FAERS Safety Report 9728720 (Version 1)
Quarter: 2013Q4

REPORT INFORMATION
  Report Type: Spontaneous
  Country: US (occurrence: US)
  Receive Date: 20131204
  Receipt Date: 20131204
  Transmission Date: 20140711
  Serious: Yes (Other)
  Sender: FDA-Public Use
  Company Number: US-PFIZER INC-2013344824

PATIENT
  Age: 51 Year
  Sex: Female
  Weight: 84 kg

DRUGS (3)
  1. XELJANZ [Suspect]
     Indication: RHEUMATOID ARTHRITIS
     Dosage: 5 MG, 2X/DAY
     Route: 048
     Dates: start: 20130925, end: 201310
  2. SYNTHROID [Concomitant]
     Dosage: 75 MG, 1X/DAY
  3. METHOTREXATE [Concomitant]
     Dosage: 20 MG, WEEKLY

REACTIONS (3)
  - Pneumonia [Recovered/Resolved]
  - Rheumatoid arthritis [Unknown]
  - Drug ineffective [Unknown]
